FAERS Safety Report 7068267-1 (Version None)
Quarter: 2010Q4

REPORT INFORMATION
  Report Type: 
  Country: None (occurrence: None)
  Receive Date: 20101028
  Receipt Date: 20101018
  Transmission Date: 20110411
  Serious: Yes (Other)
  Sender: FDA-Public Use
  Company Number: US-ROCHE-734963

PATIENT

DRUGS (12)
  1. PEGINTERFERON ALFA-2A [Suspect]
     Indication: HEPATITIS C
     Route: 065
  2. PEGINTERFERON ALFA-2A [Suspect]
     Dosage: DOSE REDUCED.
     Route: 065
  3. PEGINTERFERON ALFA-2B [Suspect]
     Indication: HEPATITIS C
     Route: 065
  4. PEGINTERFERON ALFA-2B [Suspect]
     Dosage: DOSE REDUCED.
     Route: 065
  5. RIBAVIRIN [Suspect]
     Indication: HEPATITIS C
     Dosage: DOSE: 11 TO 15MG/KG/DAY
     Route: 065
  6. RIBAVIRIN [Suspect]
     Dosage: DOSE REDUCED.
     Route: 065
  7. MYCOPHENOLATE MOFETIL [Suspect]
     Route: 065
  8. TACROLIMUS [Suspect]
     Dosage: IMMUNOSUPPRESSION MODIFIED.
     Route: 065
  9. CYCLOSPORINE [Suspect]
     Dosage: IMMUNOSUPPRESSION MODIFIED.
     Route: 065
  10. SIROLIMUS [Suspect]
     Dosage: IMMUNOSUPPRESSION MODIFIED.
     Route: 065
  11. PREDNISOLONE [Suspect]
     Dosage: DOSE TAPERED
     Route: 065
  12. PREDNISOLONE [Suspect]
     Dosage: DOSE EITHER MAINTAINED AT 1 TO 3 MG DAILY OR STOPPED.
     Route: 065

REACTIONS (7)
  - DEPRESSION [None]
  - HAEMOLYSIS [None]
  - LIVER FUNCTION TEST ABNORMAL [None]
  - NEUTROPENIA [None]
  - PNEUMONITIS CHEMICAL [None]
  - RENAL IMPAIRMENT [None]
  - THROMBOCYTOPENIA [None]
